FAERS Safety Report 12720857 (Version 1)
Quarter: 2016Q3

REPORT INFORMATION
  Report Type: Other
  Country: US (occurrence: US)
  Receive Date: 20160907
  Receipt Date: 20160907
  Transmission Date: 20161109
  Serious: No
  Sender: FDA-Public Use
  Company Number: US-COL_21300_2015

PATIENT
  Sex: Female

DRUGS (3)
  1. COLGATE TOTAL WHITENING [Suspect]
     Active Substance: SODIUM FLUORIDE\TRICLOSAN
     Dosage: COVERED HEAD OF HER ELECTRIC TOOTHBRUSH WITH THE TOOTHPASTE/ BID/
     Route: 048
     Dates: end: 201510
  2. CREST [Suspect]
     Active Substance: SODIUM FLUORIDE
     Indication: PRODUCT USED FOR UNKNOWN INDICATION
     Dosage: NI/ NI/
     Route: 048
     Dates: start: 201510
  3. COLGATE TOTAL WHITENING [Suspect]
     Active Substance: SODIUM FLUORIDE\TRICLOSAN
     Indication: PRODUCT USED FOR UNKNOWN INDICATION
     Dosage: COVERED HEAD OF HER ELECTRIC TOOTHBRUSH WITH THE TOOTHPASTE/ BID/
     Route: 048
     Dates: start: 2015

REACTIONS (2)
  - Oral herpes [Not Recovered/Not Resolved]
  - Oral mucosal exfoliation [Not Recovered/Not Resolved]

NARRATIVE: CASE EVENT DATE: 201510
